FAERS Safety Report 5477019-5 (Version None)
Quarter: 2007Q4

REPORT INFORMATION
  Report Type: 
  Country: None (occurrence: None)
  Receive Date: 20071002
  Receipt Date: 20071002
  Transmission Date: 20080405
  Serious: Yes (Disabling, Other)
  Sender: FDA-Public Use
  Company Number: None

PATIENT
  Age: 31 Year
  Sex: Female
  Weight: 63.05 kg

DRUGS (3)
  1. PAXIL [Suspect]
     Indication: ANXIETY
     Dosage: 20 MG Q DAY PO
     Route: 048
  2. PAXIL [Suspect]
     Indication: DEPRESSION
     Dosage: 20 MG Q DAY PO
     Route: 048
  3. PAXIL [Suspect]
     Indication: POSTPARTUM DISORDER
     Dosage: 20 MG Q DAY PO
     Route: 048

REACTIONS (18)
  - AGGRESSION [None]
  - ANGER [None]
  - ANOREXIA [None]
  - ANXIETY [None]
  - CONFUSIONAL STATE [None]
  - DIARRHOEA [None]
  - DIZZINESS [None]
  - DRY MOUTH [None]
  - FEAR [None]
  - FEELING ABNORMAL [None]
  - HEADACHE [None]
  - INSOMNIA [None]
  - IRRITABILITY [None]
  - MORBID THOUGHTS [None]
  - MUSCLE TWITCHING [None]
  - ORAL INTAKE REDUCED [None]
  - PANIC ATTACK [None]
  - SPEECH DISORDER [None]
